FAERS Safety Report 8300846-3 (Version None)
Quarter: 2012Q2

REPORT INFORMATION
  Report Type: 
  Country: None (occurrence: None)
  Receive Date: 20120420
  Receipt Date: 20120416
  Transmission Date: 20120825
  Serious: No
  Sender: FDA-Public Use
  Company Number: US-B.I. PHARMACEUTICALS,INC./RIDGEFIELD-2012-BP-07198BP

PATIENT
  Age: 60 Year
  Sex: Female

DRUGS (4)
  1. SPIRIVA [Suspect]
     Indication: CHRONIC OBSTRUCTIVE PULMONARY DISEASE
     Dosage: 18 MCG
     Route: 055
     Dates: start: 20120401, end: 20120411
  2. MEDICATION NOT FURTHER SPECIFIED [Concomitant]
     Indication: PAIN
  3. THYROID TAB [Concomitant]
     Indication: HYPOTHYROIDISM
     Route: 048
  4. VYTORIN [Concomitant]
     Indication: BLOOD CHOLESTEROL INCREASED
     Route: 048

REACTIONS (11)
  - FIBROMYALGIA [None]
  - VISUAL IMPAIRMENT [None]
  - ORAL HERPES [None]
  - DRUG INEFFECTIVE [None]
  - CHILLS [None]
  - CHEST PAIN [None]
  - DRY MOUTH [None]
  - ABDOMINAL PAIN [None]
  - CONSTIPATION [None]
  - RASH [None]
  - THROAT IRRITATION [None]
